FAERS Safety Report 5177059-X (Version None)
Quarter: 2006Q4

REPORT INFORMATION
  Report Type: 
  Country: None (occurrence: None)
  Receive Date: 20061218
  Receipt Date: 20061215
  Transmission Date: 20070319
  Serious: Yes (Hospitalization)
  Sender: FDA-Public Use
  Company Number: FR-GLAXOSMITHKLINE-B0450683A

PATIENT
  Age: 69 Year
  Sex: Female
  Weight: 50 kg

DRUGS (4)
  1. CLAMOXYL [Suspect]
     Indication: INFECTION
     Dosage: 500MG FOUR TIMES PER DAY
     Route: 048
     Dates: start: 20060925, end: 20061002
  2. PREVISCAN [Suspect]
     Dosage: 20MG PER DAY
     Route: 048
     Dates: start: 20060828, end: 20061002
  3. LOXEN [Concomitant]
     Dosage: 20MG THREE TIMES PER DAY
     Route: 048
  4. NICORANDIL [Concomitant]
     Dosage: 5MG TWICE PER DAY
     Route: 048

REACTIONS (8)
  - ACTIVATED PARTIAL THROMBOPLASTIN TIME PROLONGED [None]
  - BLOOD FIBRINOGEN INCREASED [None]
  - DRUG INTERACTION [None]
  - GASTRITIS [None]
  - HAEMORRHOIDS [None]
  - HIATUS HERNIA [None]
  - MELAENA [None]
  - RECTAL POLYP [None]
